FAERS Safety Report 4928247-6 (Version None)
Quarter: 2006Q1

REPORT INFORMATION
  Report Type: 
  Country: None (occurrence: None)
  Receive Date: 20060223
  Receipt Date: 20060131
  Transmission Date: 20060701
  Serious: Yes (Disabling, Other)
  Sender: FDA-Public Use
  Company Number: CH200602000037

PATIENT
  Sex: Male

DRUGS (11)
  1. ZYPREXA [Suspect]
     Indication: SOMATOFORM DISORDER
     Dosage: 5 MG, DAILY (1/D), ORAL
     Route: 048
     Dates: start: 20030401, end: 20031101
  2. ZYPREXA [Suspect]
     Indication: SOMATOFORM DISORDER
     Dosage: SEE IMAGE
     Route: 048
     Dates: start: 20031201, end: 20050703
  3. ZYPREXA [Suspect]
     Indication: SOMATOFORM DISORDER
     Dosage: SEE IMAGE
     Route: 048
     Dates: start: 20050701, end: 20051109
  4. ZYPREXA [Suspect]
     Indication: SOMATOFORM DISORDER
     Dosage: SEE IMAGE
     Route: 048
     Dates: start: 20051110, end: 20051124
  5. ZYPREXA [Suspect]
     Indication: SOMATOFORM DISORDER
     Dosage: SEE IMAGE
     Route: 048
     Dates: start: 20051125, end: 20060110
  6. ZYPREXA [Suspect]
     Indication: SOMATOFORM DISORDER
     Dosage: SEE IMAGE
     Route: 048
     Dates: start: 20060111, end: 20060118
  7. ZYPREXA [Suspect]
     Indication: SOMATOFORM DISORDER
     Dosage: SEE IMAGE
     Route: 048
     Dates: start: 20060119, end: 20060123
  8. DEPAKENE [Concomitant]
  9. LORAZEPAM [Concomitant]
  10. TENORETIC 100 [Concomitant]
  11. QUETIAPINE FUMARATE [Concomitant]

REACTIONS (10)
  - BLOOD CHOLESTEROL INCREASED [None]
  - BLOOD TRIGLYCERIDES INCREASED [None]
  - DIABETES MELLITUS NON-INSULIN-DEPENDENT [None]
  - DRUG LEVEL INCREASED [None]
  - GLYCOSYLATED HAEMOGLOBIN INCREASED [None]
  - HIGH DENSITY LIPOPROTEIN DECREASED [None]
  - HYPERLIPIDAEMIA [None]
  - METABOLIC SYNDROME [None]
  - PRESCRIBED OVERDOSE [None]
  - WEIGHT INCREASED [None]
